FAERS Safety Report 16135141 (Version 1)
Quarter: 2019Q1

REPORT INFORMATION
  Report Type: Spontaneous
  Country: US (occurrence: US)
  Receive Date: 20190329
  Receipt Date: 20190329
  Transmission Date: 20190418
  Serious: No
  Sender: FDA-Public Use
  Company Number: US-BAYER-2019-056653

PATIENT
  Age: 70 Year
  Sex: Female

DRUGS (1)
  1. STIVARGA [Suspect]
     Active Substance: REGORAFENIB
     Dosage: 80 MG, BID
     Route: 048
     Dates: start: 20190226

REACTIONS (3)
  - Dysphagia [Not Recovered/Not Resolved]
  - Incorrect route of product administration [None]
  - Wrong technique in product usage process [None]
